FAERS Safety Report 9444359 (Version 1)
Quarter: 2013Q3

REPORT INFORMATION
  Report Type: Report from Study
  Country: FR (occurrence: FR)
  Receive Date: 20130807
  Receipt Date: 20130807
  Transmission Date: 20140515
  Serious: Yes (Hospitalization)
  Sender: FDA-Public Use
  Company Number: FR-009507513-1307FRA016560

PATIENT
  Sex: Male
  Weight: 72 kg

DRUGS (5)
  1. SITAGLIPTIN PHOSPHATE [Suspect]
     Indication: TYPE 2 DIABETES MELLITUS
     Dosage: 1 DF, QD
     Route: 048
     Dates: start: 20091007, end: 20100910
  2. VELMETIA [Suspect]
     Indication: TYPE 2 DIABETES MELLITUS
     Dosage: 2 DF, UNKNOWN
     Route: 065
     Dates: start: 20100910
  3. METFORMIN [Suspect]
     Indication: TYPE 2 DIABETES MELLITUS
     Dosage: 850 MG, UNKNOWN
     Route: 065
     Dates: start: 20091007, end: 20100602
  4. METFORMIN [Suspect]
     Dosage: 1000 UNK, UNK
     Route: 065
     Dates: start: 20100602, end: 20100910
  5. AMAREL [Suspect]
     Indication: TYPE 2 DIABETES MELLITUS
     Dosage: 1 MG, QD
     Route: 065
     Dates: start: 20111125, end: 20121009

REACTIONS (2)
  - Meningorrhagia [Unknown]
  - Drug ineffective [Unknown]
